FAERS Safety Report 11587352 (Version 1)
Quarter: 2015Q4

REPORT INFORMATION
  Report Type: Spontaneous
  Country: GB (occurrence: GB)
  Receive Date: 20151001
  Receipt Date: 20151001
  Transmission Date: 20160304
  Serious: Yes (Disabling)
  Sender: FDA-Public Use
  Company Number: PHHY2015GB117206

PATIENT
  Age: 54 Year
  Sex: Female

DRUGS (2)
  1. QUININE [Suspect]
     Active Substance: QUININE
     Indication: MUSCLE SPASMS
     Dosage: 300 MG, UNK
     Route: 065
  2. FLUOXETINE [Suspect]
     Active Substance: FLUOXETINE HYDROCHLORIDE
     Indication: MUSCLE SPASMS
     Route: 065

REACTIONS (1)
  - Optic ischaemic neuropathy [Recovered/Resolved]
